FAERS Safety Report 10677491 (Version 1)
Quarter: 2014Q4

REPORT INFORMATION
  Report Type: Report from Study
  Country: NL (occurrence: NL)
  Receive Date: 20141227
  Receipt Date: 20141227
  Transmission Date: 20150529
  Serious: Yes (Death)
  Sender: FDA-Public Use
  Company Number: NL-AMGEN-NLDSL2014100256

PATIENT
  Age: 86 Year
  Sex: Male

DRUGS (1)
  1. NPLATE [Suspect]
     Active Substance: ROMIPLOSTIM
     Indication: PRODUCT USED FOR UNKNOWN INDICATION
     Dosage: 250 MUG, Q3WK
     Route: 058
     Dates: start: 20130717, end: 20141222

REACTIONS (1)
  - Death [Fatal]

NARRATIVE: CASE EVENT DATE: 20141222
